FAERS Safety Report 7658110-1 (Version None)
Quarter: 2011Q3

REPORT INFORMATION
  Report Type: 
  Country: None (occurrence: None)
  Receive Date: 20110805
  Receipt Date: 20110801
  Transmission Date: 20111222
  Serious: Yes (Life-Threatening)
  Sender: FDA-Public Use
  Company Number: US-GENZYME-CAMP-1001584

PATIENT
  Sex: Female
  Weight: 128.12 kg

DRUGS (15)
  1. ALEMTUZUMAB [Suspect]
     Dosage: 24 MG, QD
     Route: 042
     Dates: start: 20100201, end: 20100202
  2. ALEMTUZUMAB [Suspect]
     Dosage: 24 MG, QD
     Route: 042
     Dates: start: 20100222
  3. ALEMTUZUMAB [Suspect]
     Dosage: 24 MG, QD
     Route: 042
     Dates: start: 20110420
  4. METHYLPREDNISOLONE [Concomitant]
     Dosage: 1 G, QD
     Route: 042
     Dates: start: 20100202, end: 20100202
  5. BENADRYL [Concomitant]
     Indication: INFUSION RELATED REACTION
     Dosage: 25 MG, ONCE
     Route: 048
     Dates: start: 20110420, end: 20110420
  6. ALEMTUZUMAB [Suspect]
     Indication: MULTIPLE SCLEROSIS
     Dosage: 24 MG, QDX5
     Route: 042
     Dates: start: 20090202, end: 20090206
  7. METHYLPREDNISOLONE [Concomitant]
     Indication: MULTIPLE SCLEROSIS
     Dosage: 1 G, QD
     Route: 042
     Dates: start: 20090202, end: 20090204
  8. PEPCID [Concomitant]
     Dosage: 20 MG, ONCE
     Route: 048
     Dates: start: 20110420, end: 20110420
  9. BENADRYL [Concomitant]
     Dosage: 25 MG, PRN
     Route: 048
     Dates: start: 20110421
  10. METHYLPREDNISOLONE [Concomitant]
     Dosage: 1 G, QD
     Route: 042
     Dates: start: 20100203, end: 20100203
  11. PEPCID [Concomitant]
     Indication: INFUSION RELATED REACTION
     Dosage: 20 MG, UNK
     Route: 048
     Dates: start: 20110419, end: 20110420
  12. ZYRTEC [Concomitant]
     Indication: PRODUCT USED FOR UNKNOWN INDICATION
     Dosage: 10 MG, UNK
     Route: 048
     Dates: start: 20110417, end: 20110420
  13. LYRICA [Concomitant]
     Indication: PRODUCT USED FOR UNKNOWN INDICATION
     Dosage: 75 MG, QD
     Route: 048
     Dates: start: 20110315
  14. METHYLPREDNISOLONE [Concomitant]
     Dosage: 1 G, QD
     Route: 042
     Dates: start: 20100222, end: 20100222
  15. BENADRYL [Concomitant]
     Dosage: 50 MG, ONCE
     Route: 042
     Dates: start: 20110422, end: 20110422

REACTIONS (1)
  - ANAPHYLACTOID REACTION [None]
